FAERS Safety Report 25258751 (Version 2)
Quarter: 2025Q2

REPORT INFORMATION
  Report Type: Spontaneous
  Country: BE (occurrence: BE)
  Receive Date: 20250501
  Receipt Date: 20250513
  Transmission Date: 20250716
  Serious: Yes (Hospitalization)
  Sender: ABBVIE
  Company Number: BE-ABBVIE-6257081

PATIENT
  Sex: Female

DRUGS (1)
  1. MIRVETUXIMAB SORAVTANSINE-GYNX [Suspect]
     Active Substance: MIRVETUXIMAB SORAVTANSINE-GYNX
     Indication: Product used for unknown indication
     Route: 042

REACTIONS (4)
  - Tachycardia [Not Recovered/Not Resolved]
  - Vertigo [Unknown]
  - Asthenia [Not Recovered/Not Resolved]
  - Dizziness [Unknown]
